FAERS Safety Report 8092793-X (Version None)
Quarter: 2012Q1

REPORT INFORMATION
  Report Type: 
  Country: None (occurrence: None)
  Receive Date: 20120128
  Receipt Date: 20110812
  Transmission Date: 20120608
  Serious: No
  Sender: FDA-Public Use
  Company Number: US-ABBOTT-11P-163-0846192-00

PATIENT
  Age: 65 Year
  Sex: Male

DRUGS (10)
  1. SIMVASTATIN [Concomitant]
     Indication: BLOOD CHOLESTEROL INCREASED
  2. METHOTREXATE [Concomitant]
     Indication: PRODUCT USED FOR UNKNOWN INDICATION
  3. FOLIC ACID [Concomitant]
     Indication: PROPHYLAXIS
  4. PREDNISONE TAB [Concomitant]
     Indication: RHEUMATOID ARTHRITIS
  5. HUMIRA [Suspect]
     Indication: RHEUMATOID ARTHRITIS
     Dates: start: 20110201
  6. HYDROCHLOROTHIAZIDE [Concomitant]
     Indication: HYPERTENSION
  7. PERCOCET-5 [Concomitant]
     Indication: PAIN
     Dosage: 5-10 MG
  8. OMEPERZOLE [Concomitant]
     Indication: GASTROOESOPHAGEAL REFLUX DISEASE
  9. GLYBURIDE [Concomitant]
     Indication: DIABETES MELLITUS
  10. LOSARTAN POTASSIUM [Concomitant]
     Indication: HYPERTENSION

REACTIONS (2)
  - RASH [None]
  - BRONCHITIS [None]
